FAERS Safety Report 16015133 (Version 1)
Quarter: 2019Q1

REPORT INFORMATION
  Report Type: Spontaneous
  Country: US (occurrence: US)
  Receive Date: 20190228
  Receipt Date: 20190228
  Transmission Date: 20190418
  Serious: No
  Sender: FDA-Public Use
  Company Number: US-JNJFOC-20190211337

PATIENT
  Age: 68 Year
  Sex: Female
  Weight: 94.8 kg

DRUGS (8)
  1. XARELTO [Suspect]
     Active Substance: RIVAROXABAN
     Indication: DEEP VEIN THROMBOSIS
     Route: 048
     Dates: start: 20181105
  2. ZEAXANTHIN [Concomitant]
     Active Substance: ZEAXANTHIN
     Indication: MACULAR DEGENERATION
     Route: 048
     Dates: start: 2014
  3. CALCIUM CITRATE [Concomitant]
     Active Substance: CALCIUM CITRATE
     Indication: MALABSORPTION
     Route: 048
     Dates: start: 2014
  4. VITAMIN D3 [Concomitant]
     Active Substance: CHOLECALCIFEROL
     Indication: MALABSORPTION
     Route: 048
     Dates: start: 2014
  5. VITAMINE A [Concomitant]
     Active Substance: RETINOL
     Indication: MALABSORPTION
     Route: 048
     Dates: start: 2014
  6. IRON [Concomitant]
     Active Substance: IRON
     Indication: MALABSORPTION
     Route: 048
     Dates: start: 2014
  7. LUTEIN [Concomitant]
     Active Substance: LUTEIN
     Indication: MALABSORPTION
     Route: 048
     Dates: start: 2014
  8. VITAMIN C [Concomitant]
     Active Substance: ASCORBIC ACID
     Indication: MALABSORPTION
     Route: 048
     Dates: start: 2014

REACTIONS (1)
  - Tinnitus [Not Recovered/Not Resolved]

NARRATIVE: CASE EVENT DATE: 201901
